FAERS Safety Report 4336586-5 (Version None)
Quarter: 2004Q2

REPORT INFORMATION
  Report Type: 
  Country: None (occurrence: None)
  Receive Date: 20040407
  Receipt Date: 20040322
  Transmission Date: 20050107
  Serious: Yes (Other)
  Sender: FDA-Public Use
  Company Number: A03200400903

PATIENT
  Sex: Female

DRUGS (1)
  1. PLAVIX [Suspect]
     Dosage: ORAL
     Route: 048
     Dates: start: 20040201

REACTIONS (1)
  - PARALYSIS [None]
